FAERS Safety Report 14659298 (Version 2)
Quarter: 2018Q2

REPORT INFORMATION
  Report Type: Report from Study
  Country: CA (occurrence: CA)
  Receive Date: 20180320
  Receipt Date: 20180403
  Transmission Date: 20180711
  Serious: Yes (Hospitalization)
  Sender: FDA-Public Use
  Company Number: CA-BAYER-2018-047527

PATIENT
  Age: 75 Year
  Sex: Male

DRUGS (3)
  1. ADEMPAS [Suspect]
     Active Substance: RIOCIGUAT
     Indication: PULMONARY ARTERIAL HYPERTENSION
     Dosage: UNK
  2. HYDROMORPHONE [Concomitant]
     Active Substance: HYDROMORPHONE
     Indication: PAIN
  3. ADEMPAS [Suspect]
     Active Substance: RIOCIGUAT
     Indication: PULMONARY ARTERIAL HYPERTENSION
     Dosage: 2.0 MG, TID
     Dates: start: 20150408

REACTIONS (7)
  - Loss of consciousness [None]
  - Fall [None]
  - Syncope [Recovered/Resolved]
  - Dyspnoea [Unknown]
  - Inguinal hernia [Not Recovered/Not Resolved]
  - Blood pressure diastolic decreased [Unknown]
  - Dizziness [Unknown]

NARRATIVE: CASE EVENT DATE: 20180228
